FAERS Safety Report 11644101 (Version 1)
Quarter: 2015Q4

REPORT INFORMATION
  Report Type: Spontaneous
  Country: US (occurrence: None)
  Receive Date: 20151019
  Receipt Date: 20151019
  Transmission Date: 20160304
  Serious: Yes (Hospitalization)
  Sender: FDA-Public Use
  Company Number: None

PATIENT
  Age: 51 Year
  Sex: Male
  Weight: 90.72 kg

DRUGS (1)
  1. SALINE AND ALOE NASAL SPRAY NATURADE [Suspect]
     Active Substance: SODIUM CHLORIDE
     Indication: NASAL DECONGESTION THERAPY
     Route: 055

REACTIONS (2)
  - Tachycardia [None]
  - Electrocardiogram abnormal [None]

NARRATIVE: CASE EVENT DATE: 20150821
